FAERS Safety Report 24113303 (Version 1)
Quarter: 2024Q3

REPORT INFORMATION
  Report Type: Spontaneous
  Country: US (occurrence: US)
  Receive Date: 20240719
  Receipt Date: 20240719
  Transmission Date: 20241017
  Serious: Yes (Other)
  Sender: GRAVITI PHARMACEUTICALS
  Company Number: US-GRAVITIPHARMA-GRA-2407-US-LIT-0250

PATIENT
  Age: 72 Year
  Sex: Male

DRUGS (4)
  1. FUROSEMIDE [Suspect]
     Active Substance: FUROSEMIDE
     Indication: Left ventricular failure
     Route: 065
  2. MYCOPHENOLATE MOFETIL [Suspect]
     Active Substance: MYCOPHENOLATE MOFETIL
     Indication: Interstitial lung disease
     Route: 065
  3. MYCOPHENOLATE MOFETIL [Suspect]
     Active Substance: MYCOPHENOLATE MOFETIL
     Indication: Interstitial lung disease
  4. PREDNISONE [Suspect]
     Active Substance: PREDNISONE
     Indication: Interstitial lung disease
     Route: 065

REACTIONS (1)
  - Drug ineffective [Unknown]
